FAERS Safety Report 6419990-0 (Version None)
Quarter: 2009Q4

REPORT INFORMATION
  Report Type: 
  Country: None (occurrence: None)
  Receive Date: 20091029
  Receipt Date: 20091020
  Transmission Date: 20100525
  Serious: Yes (Hospitalization, Other)
  Sender: FDA-Public Use
  Company Number: SE-PFIZER INC-2009285739

PATIENT
  Age: 84 Year

DRUGS (15)
  1. DALACIN [Suspect]
     Dosage: UNK
     Route: 048
  2. PREDNISOLONE [Suspect]
     Dosage: UNK
     Route: 048
  3. DIMOR [Suspect]
     Indication: DIARRHOEA
     Dosage: 2 MG, UNK
     Route: 048
     Dates: start: 20090701
  4. ATACAND [Concomitant]
     Dosage: UNK
  5. OMEPRAZOLE [Concomitant]
     Dosage: UNK
  6. LACTULOSE [Concomitant]
     Dosage: UNK
  7. FUROSEMID [Concomitant]
     Dosage: UNK
  8. AMLODIPINE [Concomitant]
     Dosage: UNK
  9. SOBRIL [Concomitant]
     Dosage: UNK
  10. POTASSIUM CHLORIDE [Concomitant]
     Dosage: UNK
  11. SELOKEN [Concomitant]
     Dosage: UNK
  12. PLENDIL [Concomitant]
     Dosage: UNK
  13. IMOVANE [Concomitant]
     Dosage: UNK
  14. CITALOPRAM HYDROBROMIDE [Concomitant]
     Dosage: UNK
  15. NOVOMIX [Concomitant]
     Dosage: UNK

REACTIONS (3)
  - DIARRHOEA INFECTIOUS [None]
  - LARGE INTESTINAL ULCER HAEMORRHAGE [None]
  - SEPSIS [None]
